FAERS Safety Report 7225926-5 (Version None)
Quarter: 2011Q1

REPORT INFORMATION
  Report Type: 
  Country: None (occurrence: None)
  Receive Date: 20110113
  Receipt Date: 20110110
  Transmission Date: 20110831
  Serious: Yes (Other)
  Sender: FDA-Public Use
  Company Number: AU-PFIZER INC-2011005297

PATIENT
  Age: 90 Year
  Sex: Female

DRUGS (3)
  1. XALATAN [Suspect]
     Indication: GLAUCOMA
     Dosage: BOTH EYES AT NIGHT
     Dates: start: 20100501
  2. FOLATE [Concomitant]
  3. ZOTON [Concomitant]

REACTIONS (6)
  - INCORRECT DOSE ADMINISTERED [None]
  - INFECTION [None]
  - VISION BLURRED [None]
  - VISUAL IMPAIRMENT [None]
  - METAMORPHOPSIA [None]
  - LOCALISED INFECTION [None]
